FAERS Safety Report 25877849 (Version 4)
Quarter: 2025Q4

REPORT INFORMATION
  Report Type: Report from Study
  Country: AR (occurrence: AR)
  Receive Date: 20251003
  Receipt Date: 20251201
  Transmission Date: 20260118
  Serious: Yes (Death, Hospitalization, Other)
  Sender: TAKEDA
  Company Number: AR-TAKEDA-2025TUS086788

PATIENT
  Age: 68 Year
  Sex: Male

DRUGS (1)
  1. VEDOLIZUMAB [Suspect]
     Active Substance: VEDOLIZUMAB
     Indication: Colitis ulcerative
     Dosage: 300 MILLIGRAM

REACTIONS (5)
  - Skin cancer [Fatal]
  - Colitis ulcerative [Fatal]
  - Pleural effusion [Recovering/Resolving]
  - Abnormal behaviour [Unknown]
  - Dizziness [Unknown]

NARRATIVE: CASE EVENT DATE: 20251003
